FAERS Safety Report 10177355 (Version 1)
Quarter: 2014Q2

REPORT INFORMATION
  Report Type: Spontaneous
  Country: US (occurrence: US)
  Receive Date: 20140516
  Receipt Date: 20140516
  Transmission Date: 20141212
  Serious: Yes (Other)
  Sender: FDA-Public Use
  Company Number: US-TEVA-481502USA

PATIENT
  Age: 55 Year
  Sex: Female

DRUGS (4)
  1. NUVIGIL [Suspect]
     Indication: MENTAL IMPAIRMENT
     Dosage: 7 MILLIGRAM DAILY;
     Route: 048
     Dates: start: 201404
  2. NAMENDA [Suspect]
     Indication: COGNITIVE DISORDER
     Dosage: 37.5 MILLIGRAM DAILY;
     Dates: start: 201404
  3. KLONOPIN [Concomitant]
  4. EXELON [Concomitant]

REACTIONS (4)
  - Mental impairment [Recovered/Resolved]
  - Tachyphrenia [Recovered/Resolved]
  - Restlessness [Recovered/Resolved]
  - Off label use [Recovered/Resolved]
